FAERS Safety Report 4411729-3 (Version None)
Quarter: 2004Q3

REPORT INFORMATION
  Report Type: 
  Country: None (occurrence: None)
  Receive Date: 20040728
  Receipt Date: 20040720
  Transmission Date: 20050211
  Serious: Yes (Life-Threatening, Hospitalization)
  Sender: FDA-Public Use
  Company Number: 2004-07-0889

PATIENT
  Age: 39 Year
  Sex: Male

DRUGS (4)
  1. AERIUS (DESLORATADINE) TABLETS [Suspect]
     Indication: NASOPHARYNGITIS
     Dosage: 5 MG QD PRN* ORAL
     Route: 048
     Dates: start: 20040601, end: 20040601
  2. AERIUS (DESLORATADINE) TABLETS [Suspect]
     Indication: NASOPHARYNGITIS
     Dosage: 5 MG QD PRN* ORAL
     Route: 048
     Dates: start: 20040702, end: 20040702
  3. ZINNAT TABLETS [Suspect]
     Indication: NASOPHARYNGITIS
     Dosage: 1TAB QD* ORAL
     Route: 048
     Dates: start: 20040601, end: 20040601
  4. ZINNAT TABLETS [Suspect]
     Indication: NASOPHARYNGITIS
     Dosage: 1TAB QD* ORAL
     Route: 048
     Dates: start: 20040702, end: 20040702

REACTIONS (2)
  - AGGRESSION [None]
  - ANAPHYLACTIC SHOCK [None]
